FAERS Safety Report 9206078 (Version 2)
Quarter: 2014Q1

REPORT INFORMATION
  Report Type: Spontaneous
  Country: US (occurrence: US)
  Receive Date: 20130403
  Receipt Date: 20140121
  Transmission Date: 20141002
  Serious: Yes (Other)
  Sender: FDA-Public Use
  Company Number: US-BAYER-2013-039860

PATIENT
  Age: 20 Year
  Sex: Female

DRUGS (1)
  1. YAZ [Suspect]
     Dosage: UNK
     Dates: start: 200812, end: 200910

REACTIONS (4)
  - Pancreatitis [None]
  - Cholelithiasis [None]
  - Injury [None]
  - Pain [None]
